FAERS Safety Report 5931030-6 (Version None)
Quarter: 2008Q4

REPORT INFORMATION
  Report Type: 
  Country: None (occurrence: None)
  Receive Date: 20081027
  Receipt Date: 20081017
  Transmission Date: 20090506
  Serious: Yes (Other)
  Sender: FDA-Public Use
  Company Number: US-ABBOTT-08P-163-0482339-00

PATIENT
  Sex: Female

DRUGS (3)
  1. DEPAKOTE ER [Suspect]
     Indication: ANXIETY
     Route: 048
     Dates: start: 20040101
  2. DEPAKOTE ER [Suspect]
     Route: 048
     Dates: start: 20070101, end: 20080101
  3. DEPAKOTE ER [Suspect]
     Route: 048
     Dates: start: 20080101, end: 20080501

REACTIONS (5)
  - AMMONIA INCREASED [None]
  - CONVULSION [None]
  - DYSTONIA [None]
  - GRAND MAL CONVULSION [None]
  - HAEMOGLOBIN INCREASED [None]
